FAERS Safety Report 8423520-1 (Version None)
Quarter: 2012Q2

REPORT INFORMATION
  Report Type: 
  Country: None (occurrence: None)
  Receive Date: 20120608
  Receipt Date: 20120607
  Transmission Date: 20120825
  Serious: Yes (Other)
  Sender: FDA-Public Use
  Company Number: CA-ROCHE-658357

PATIENT
  Sex: Female

DRUGS (7)
  1. PREDNISONE [Concomitant]
     Indication: PREMEDICATION
     Route: 048
  2. BENADRYL [Concomitant]
     Indication: PREMEDICATION
     Route: 048
     Dates: start: 20090817, end: 20090908
  3. RITUXAN [Suspect]
     Indication: B-CELL LYMPHOMA
     Route: 042
     Dates: start: 20090817, end: 20090908
  4. ACETAMINOPHEN [Concomitant]
     Indication: PREMEDICATION
     Route: 048
     Dates: start: 20090817, end: 20090908
  5. VINCRISTINE [Concomitant]
     Route: 042
  6. CYCLOPHOSPHAMIDE [Concomitant]
     Route: 042
  7. BENADRYL [Concomitant]
     Route: 048

REACTIONS (7)
  - CARDIOMYOPATHY [None]
  - THROAT TIGHTNESS [None]
  - NAUSEA [None]
  - HYPOTENSION [None]
  - VOMITING [None]
  - CONSTIPATION [None]
  - TROPONIN INCREASED [None]
